FAERS Safety Report 25036026 (Version 1)
Quarter: 2025Q1

REPORT INFORMATION
  Report Type: Spontaneous
  Country: CN (occurrence: CN)
  Receive Date: 20250304
  Receipt Date: 20250304
  Transmission Date: 20250408
  Serious: Yes (Hospitalization, Other)
  Sender: ALEXION PHARMACEUTICALS
  Company Number: CN-ASTRAZENECA-202502CHN022040CN

PATIENT
  Age: 74 Year
  Weight: 44 kg

DRUGS (2)
  1. BRILINTA [Suspect]
     Active Substance: TICAGRELOR
     Indication: Coronary arterial stent insertion
     Dosage: 90 MILLIGRAM, BID
  2. ASPIRIN [Suspect]
     Active Substance: ASPIRIN
     Indication: Coronary arterial stent insertion
     Dosage: 0.1 GRAM, QD

REACTIONS (2)
  - Melaena [Recovering/Resolving]
  - Anaemia [Recovering/Resolving]
